FAERS Safety Report 6265194-4 (Version None)
Quarter: 2009Q3

REPORT INFORMATION
  Report Type: 
  Country: None (occurrence: None)
  Receive Date: 20090713
  Receipt Date: 20070724
  Transmission Date: 20100115
  Serious: Yes (Hospitalization)
  Sender: FDA-Public Use
  Company Number: US-ASTRAZENECA-2007UW02076

PATIENT
  Age: 514 Month
  Sex: Female
  Weight: 98.9 kg

DRUGS (16)
  1. SEROQUEL [Suspect]
     Indication: DEPRESSION
     Route: 048
     Dates: start: 19970101
  2. SEROQUEL [Suspect]
     Indication: POST-TRAUMATIC STRESS DISORDER
     Route: 048
     Dates: start: 19970101
  3. SEROQUEL [Suspect]
     Dosage: 25-200 MG ON 10-SEP-2002-AUG-2004, 200-300MG ON SEP-2004 TO PRESENT
     Route: 048
     Dates: start: 20020910
  4. SEROQUEL [Suspect]
     Dosage: 25-200 MG ON 10-SEP-2002-AUG-2004, 200-300MG ON SEP-2004 TO PRESENT
     Route: 048
     Dates: start: 20020910
  5. SEROQUEL [Suspect]
     Dosage: 25-300 MG
     Route: 048
     Dates: end: 20070417
  6. SEROQUEL [Suspect]
     Dosage: 25-300 MG
     Route: 048
     Dates: end: 20070417
  7. LIPITOR [Concomitant]
     Indication: HYPERLIPIDAEMIA
     Route: 048
     Dates: start: 20020110
  8. GLYBURIDE [Concomitant]
     Route: 048
     Dates: start: 20070126
  9. SYNTHROID [Concomitant]
     Dosage: 125-200 MCG, FLUCTUATING
     Route: 048
     Dates: start: 20010206
  10. SINGULAIR [Concomitant]
     Route: 048
     Dates: start: 20000831
  11. ADVAIR DISKUS 100/50 [Concomitant]
     Dosage: 100/50 B.I.D
     Dates: start: 20061214
  12. ZESTRIL [Concomitant]
     Route: 048
     Dates: start: 20000831
  13. ELAVIL [Concomitant]
     Indication: MIGRAINE PROPHYLAXIS
     Dosage: 50-100 MG, FLUCTUATING
     Route: 048
     Dates: start: 20010822
  14. PREDNISONE TAB [Concomitant]
     Dosage: 10-60 MG, FLUCTUATING, INTERMITTENT
     Route: 048
     Dates: start: 20010523
  15. ACTOS [Concomitant]
     Dosage: 30-45 MG
     Route: 048
     Dates: start: 20030411
  16. METFORMIN HCL [Concomitant]
     Dosage: 500-1000 MG
     Route: 048
     Dates: start: 20041129

REACTIONS (6)
  - CARDIAC ARREST [None]
  - HYPERGLYCAEMIA [None]
  - HYPERTENSION [None]
  - HYPOGLYCAEMIA [None]
  - HYPOTHYROIDISM [None]
  - TYPE 2 DIABETES MELLITUS [None]
